FAERS Safety Report 11674031 (Version 1)
Quarter: 2015Q4

REPORT INFORMATION
  Report Type: Spontaneous
  Country: US (occurrence: US)
  Receive Date: 20151028
  Receipt Date: 20151028
  Transmission Date: 20160304
  Serious: Yes (Other)
  Sender: FDA-Public Use
  Company Number: US-SUN PHARMACEUTICAL INDUSTRIES LTD-2015US-104992

PATIENT
  Age: 78 Year
  Sex: Female

DRUGS (2)
  1. DOCETAXEL. [Suspect]
     Active Substance: DOCETAXEL
     Indication: SARCOMA
     Route: 065
  2. GEMCITABINE [Suspect]
     Active Substance: GEMCITABINE\GEMCITABINE HYDROCHLORIDE
     Indication: SARCOMA
     Dosage: TWO CYCLES
     Route: 065

REACTIONS (3)
  - Choroidal effusion [Recovering/Resolving]
  - Toxicity to various agents [Unknown]
  - Retinal injury [Recovering/Resolving]
